FAERS Safety Report 23658112 (Version 1)
Quarter: 2024Q1

REPORT INFORMATION
  Report Type: Report from Study
  Country: MX (occurrence: MX)
  Receive Date: 20240321
  Receipt Date: 20240321
  Transmission Date: 20240410
  Serious: Yes (Other)
  Sender: FDA-Public Use
  Company Number: MX-ABBVIE-5682796

PATIENT
  Age: 34 Year
  Sex: Female
  Weight: 74 kg

DRUGS (3)
  1. HUMIRA [Suspect]
     Active Substance: ADALIMUMAB
     Indication: Colitis ulcerative
     Dosage: FORM STRENGTH: 40 MILLIGRAM
     Route: 058
     Dates: start: 202312, end: 202402
  2. HUMIRA [Suspect]
     Active Substance: ADALIMUMAB
     Indication: Bone pain
     Dosage: FORM STRENGTH: 40 MILLIGRAM, FREQUENCY TEXT: 8 INJECTION IN MONTH
     Route: 058
     Dates: start: 202403
  3. HUMIRA [Suspect]
     Active Substance: ADALIMUMAB
     Dosage: FORM STRENGTH: 40 MILLIGRAM
     Route: 058
     Dates: start: 20230824, end: 2023

REACTIONS (3)
  - Haematochezia [Not Recovered/Not Resolved]
  - Arthritis [Unknown]
  - Colitis ulcerative [Unknown]

NARRATIVE: CASE EVENT DATE: 20231201
